FAERS Safety Report 25422993 (Version 4)
Quarter: 2025Q3

REPORT INFORMATION
  Report Type: Spontaneous
  Country: EU (occurrence: EU)
  Receive Date: 20250611
  Receipt Date: 20250903
  Transmission Date: 20251021
  Serious: Yes (Other)
  Sender: ROCHE
  Company Number: EU-002147023-NVSC2025AT092158

PATIENT
  Sex: Female

DRUGS (3)
  1. XOLAIR [Suspect]
     Active Substance: OMALIZUMAB
     Indication: Chronic spontaneous urticaria
     Dosage: 300 MG, Q4W
     Route: 058
     Dates: start: 20250128, end: 20250224
  2. XOLAIR [Suspect]
     Active Substance: OMALIZUMAB
     Dosage: 300 MG, Q4W
     Route: 058
     Dates: start: 20250226, end: 20250326
  3. Levocetirizin Genericon [Concomitant]
     Indication: Product used for unknown indication
     Route: 065

REACTIONS (4)
  - Angioedema [Recovered/Resolved]
  - Periorbital oedema [Recovered/Resolved]
  - Periorbital oedema [Unknown]
  - Drug intolerance [Recovered/Resolved]

NARRATIVE: CASE EVENT DATE: 20250226
